FAERS Safety Report 8447327-4 (Version None)
Quarter: 2012Q2

REPORT INFORMATION
  Report Type: 
  Country: None (occurrence: None)
  Receive Date: 20120619
  Receipt Date: 20120615
  Transmission Date: 20120825
  Serious: Yes (Other)
  Sender: FDA-Public Use
  Company Number: PHHY2012JP052055

PATIENT
  Age: 74 Year
  Sex: Male

DRUGS (2)
  1. ZOMETA [Suspect]
     Indication: METASTASES TO BONE
     Dosage: 4 MG PER ADMINISTRATION
     Route: 041
     Dates: start: 20080601
  2. ZOMETA [Suspect]
     Dosage: 4 MG PER ADMINISTRATION
     Route: 041
     Dates: start: 20120226, end: 20120226

REACTIONS (1)
  - OSTEONECROSIS OF JAW [None]
